FAERS Safety Report 17323582 (Version 2)
Quarter: 2024Q3

REPORT INFORMATION
  Report Type: Spontaneous
  Country: NL (occurrence: NL)
  Receive Date: 20200127
  Receipt Date: 20240703
  Transmission Date: 20241017
  Serious: Yes (Death, Life-Threatening, Hospitalization, Other)
  Sender: AUROBINDO
  Company Number: NL-MLMSERVICE-20200114-0266795-1

PATIENT
  Age: 48 Year
  Sex: Male

DRUGS (18)
  1. FLUCONAZOLE [Suspect]
     Active Substance: FLUCONAZOLE
     Indication: Prophylaxis
     Dosage: 100 MILLIGRAM, ONCE A DAY
     Route: 042
  2. FLUCONAZOLE [Suspect]
     Active Substance: FLUCONAZOLE
     Indication: Antifungal prophylaxis
  3. PIPERACILLIN AND TAZOBACTAM [Suspect]
     Active Substance: PIPERACILLIN SODIUM\TAZOBACTAM SODIUM
     Indication: Prophylaxis
     Dosage: 1 DOSAGE FORM, 3 TIMES A DAY
     Route: 042
  4. PIPERACILLIN AND TAZOBACTAM [Suspect]
     Active Substance: PIPERACILLIN SODIUM\TAZOBACTAM SODIUM
     Indication: Spontaneous bacterial peritonitis
     Dosage: 12000 MILLIGRAM, ONCE A DAY (4000 MG, TID)
     Route: 042
  5. PIPERACILLIN AND TAZOBACTAM [Suspect]
     Active Substance: PIPERACILLIN SODIUM\TAZOBACTAM SODIUM
     Dosage: 15000 MILLIGRAM, ONCE A DAY (4000 MG, TID)
     Route: 042
  6. VORICONAZOLE [Suspect]
     Active Substance: VORICONAZOLE
     Indication: Trichosporon infection
     Dosage: 400 MILLIGRAM, ONCE A DAY (200 MG, BID)
     Route: 042
  7. AMPHOTERICIN B [Suspect]
     Active Substance: AMPHOTERICIN B
     Indication: Infection prophylaxis
     Dosage: UNK
     Route: 065
  8. BASILIXIMAB [Suspect]
     Active Substance: BASILIXIMAB
     Indication: Immunosuppressant drug therapy
     Dosage: 20 MILLIGRAM, ONCE A DAY 9ON DAY 0 AND DAY 4 AFTER TRANSPLANTATION)
     Route: 041
  9. BASILIXIMAB [Suspect]
     Active Substance: BASILIXIMAB
     Indication: Liver transplant
  10. AMPHOTERICIN B [Suspect]
     Active Substance: AMPHOTERICIN B
     Indication: Prophylaxis
     Route: 042
  11. MEROPENEM [Suspect]
     Active Substance: MEROPENEM
     Indication: Spontaneous bacterial peritonitis
     Dosage: 1000 MILLIGRAM, TWO TIMES A DAY (2000 MILLIGRAM ONCE A DAY)
     Route: 042
  12. CEFTRIAXONE [Suspect]
     Active Substance: CEFTRIAXONE\CEFTRIAXONE SODIUM
     Indication: Escherichia peritonitis
     Dosage: 2000 MILLIGRAM, DAILY
     Route: 042
  13. CEFTRIAXONE [Suspect]
     Active Substance: CEFTRIAXONE\CEFTRIAXONE SODIUM
     Indication: Spontaneous bacterial peritonitis
  14. HYDROCORTISONE [Suspect]
     Active Substance: HYDROCORTISONE\HYDROCORTISONE ACETATE
     Indication: Immunosuppressant drug therapy
     Dosage: 4 MILLIGRAM, EVERY HOUR
     Route: 041
  15. POLYMYXIN B [Concomitant]
     Active Substance: POLYMYXIN B
     Indication: Infection prophylaxis
     Dosage: UNK UNK, FOUR TIMES/DAY
     Route: 065
  16. POLYMYXIN B [Concomitant]
     Active Substance: POLYMYXIN B
     Dosage: 2 PERCENT (2 %, UNK)
     Route: 065
  17. TOBRAMYCIN [Concomitant]
     Active Substance: TOBRAMYCIN\TOBRAMYCIN SULFATE
     Indication: Infection prophylaxis
     Dosage: UNK, 3 TIMES A DAY
     Route: 065
  18. AMPHOTERICIN B [Concomitant]
     Active Substance: AMPHOTERICIN B
     Indication: Prophylaxis
     Dosage: 5 MILLIGRAM/KILOGRAM, ONCE A DAY (5 MG/KG, QD)
     Route: 042

REACTIONS (7)
  - Pathogen resistance [Fatal]
  - Multiple organ dysfunction syndrome [Fatal]
  - Trichosporon infection [Fatal]
  - Cholangitis infective [Not Recovered/Not Resolved]
  - Abdominal compartment syndrome [Not Recovered/Not Resolved]
  - Drug resistance [Unknown]
  - Treatment failure [Unknown]
